FAERS Safety Report 11043940 (Version 2)
Quarter: 2015Q2

REPORT INFORMATION
  Report Type: Other
  Country: CO (occurrence: CO)
  Receive Date: 20150417
  Receipt Date: 20150422
  Transmission Date: 20150821
  Serious: Yes (Other)
  Sender: FDA-Public Use
  Company Number: CO-SHIRE-CO201402095

PATIENT
  Age: 5 Year
  Sex: Male
  Weight: 26 kg

DRUGS (1)
  1. ELAPRASE [Suspect]
     Active Substance: IDURSULFASE
     Indication: MUCOPOLYSACCHARIDOSIS II
     Dosage: 12 MG OTHER 2 VIALS/(EVERY 7 DAYS)
     Route: 041
     Dates: start: 20130411

REACTIONS (4)
  - Mitral valve incompetence [Unknown]
  - Aortic valve incompetence [Unknown]
  - Respiratory distress [Unknown]
  - Increased bronchial secretion [Unknown]

NARRATIVE: CASE EVENT DATE: 20140507
